FAERS Safety Report 25894281 (Version 3)
Quarter: 2025Q4

REPORT INFORMATION
  Report Type: Spontaneous
  Country: JP (occurrence: JP)
  Receive Date: 20251008
  Receipt Date: 20251212
  Transmission Date: 20260118
  Serious: Yes (Life-Threatening, Hospitalization)
  Sender: ROCHE
  Company Number: JP-CHUGAI-2025031537

PATIENT
  Age: 71 Year
  Sex: Male
  Weight: 63 kg

DRUGS (6)
  1. TECENTRIQ [Suspect]
     Active Substance: ATEZOLIZUMAB
     Indication: Lung adenocarcinoma
     Dosage: 1200 MILLIGRAM, SINGLE
     Route: 041
     Dates: end: 20250701
  2. CANDESARTAN [Concomitant]
     Active Substance: CANDESARTAN
     Dosage: UNK
     Route: 048
  3. FEBUXOSTAT [Concomitant]
     Active Substance: FEBUXOSTAT
     Dosage: UNK
     Route: 048
  4. SILODOSIN OD [Concomitant]
     Dosage: UNK
     Route: 048
  5. MIYA-BM [Concomitant]
     Active Substance: CLOSTRIDIUM BUTYRICUM SPORES STRAIN M-55
     Dosage: UNK
     Route: 048
  6. MAGNESIUM OXIDE [Concomitant]
     Active Substance: MAGNESIUM OXIDE
     Dosage: UNK
     Route: 048

REACTIONS (3)
  - Autoimmune haemolytic anaemia [Not Recovered/Not Resolved]
  - Haemorrhoids [Unknown]
  - Arthralgia [Unknown]

NARRATIVE: CASE EVENT DATE: 20250101
